FAERS Safety Report 5856319-0 (Version None)
Quarter: 2008Q3

REPORT INFORMATION
  Report Type: 
  Country: None (occurrence: None)
  Receive Date: 20080825
  Receipt Date: 20080816
  Transmission Date: 20090109
  Serious: Yes (Other)
  Sender: FDA-Public Use
  Company Number: US-AMGEN-QUU301998

PATIENT
  Sex: Male

DRUGS (2)
  1. ENBREL [Suspect]
     Indication: RHEUMATOID ARTHRITIS
     Route: 058
     Dates: start: 20030606
  2. METHOTREXATE [Concomitant]
     Dates: start: 20030716

REACTIONS (4)
  - ARTHRALGIA [None]
  - GASTRIC DISORDER [None]
  - INJECTION SITE IRRITATION [None]
  - LUNG NEOPLASM [None]
